FAERS Safety Report 7454077-X (Version None)
Quarter: 2011Q2

REPORT INFORMATION
  Report Type: 
  Country: None (occurrence: None)
  Receive Date: 20110502
  Receipt Date: 20090630
  Transmission Date: 20111010
  Serious: Yes (Other)
  Sender: FDA-Public Use
  Company Number: DE-GENENTECH-317804

PATIENT
  Age: 76 Year

DRUGS (2)
  1. LUCENTIS [Suspect]
     Indication: AGE-RELATED MACULAR DEGENERATION
     Dosage: UNK
     Route: 031
     Dates: start: 20090320
  2. CORTISONE CREAM [Concomitant]
     Indication: UVEITIS
     Dosage: UNK

REACTIONS (3)
  - UVEITIS [None]
  - MACULAR DEGENERATION [None]
  - CORNEAL OEDEMA [None]
